FAERS Safety Report 7468991-2 (Version None)
Quarter: 2011Q2

REPORT INFORMATION
  Report Type: 
  Country: None (occurrence: None)
  Receive Date: 20110510
  Receipt Date: 20110324
  Transmission Date: 20111010
  Serious: Yes (Hospitalization)
  Sender: FDA-Public Use
  Company Number: JP-JNJFOC-20110411912

PATIENT
  Age: 71 Year
  Sex: Male
  Weight: 51 kg

DRUGS (10)
  1. PREDNISOLONE [Suspect]
     Indication: PRODUCT USED FOR UNKNOWN INDICATION
     Route: 048
  2. PREDNISOLONE [Suspect]
     Route: 048
  3. FOLIC ACID [Concomitant]
     Indication: PROPHYLAXIS
     Route: 048
  4. PYDOXAL [Concomitant]
     Indication: PROPHYLAXIS
     Route: 048
  5. BASEN [Concomitant]
     Indication: DIABETES MELLITUS
     Route: 048
  6. REMICADE [Suspect]
     Indication: RHEUMATOID ARTHRITIS
     Route: 042
  7. RHEUMATREX [Suspect]
     Indication: PRODUCT USED FOR UNKNOWN INDICATION
     Route: 048
  8. ISONIAZID [Concomitant]
     Indication: ANTIBIOTIC PROPHYLAXIS
     Route: 065
  9. MUCOSTA [Concomitant]
     Indication: PROPHYLAXIS
     Route: 048
  10. REMICADE [Suspect]
     Dosage: FIFTH DOSE
     Route: 042

REACTIONS (4)
  - CALCULUS URINARY [None]
  - PLEURAL EFFUSION [None]
  - HAEMATURIA [None]
  - PLEURISY [None]
